FAERS Safety Report 7251383-9 (Version None)
Quarter: 2011Q1

REPORT INFORMATION
  Report Type: 
  Country: None (occurrence: None)
  Receive Date: 20110128
  Receipt Date: 20110124
  Transmission Date: 20110831
  Serious: Yes (Hospitalization, Other)
  Sender: FDA-Public Use
  Company Number: US-PFIZER INC-2011017188

PATIENT
  Sex: Male
  Weight: 106 kg

DRUGS (1)
  1. VIAGRA [Suspect]
     Indication: ERECTILE DYSFUNCTION
     Dosage: UNK
     Route: 048
     Dates: start: 20090101, end: 20100101

REACTIONS (2)
  - SPINAL OPERATION [None]
  - ROAD TRAFFIC ACCIDENT [None]
